FAERS Safety Report 4909429-6 (Version None)
Quarter: 2006Q1

REPORT INFORMATION
  Report Type: 
  Country: None (occurrence: None)
  Receive Date: 20060213
  Receipt Date: 20050310
  Transmission Date: 20060701
  Serious: Yes (Hospitalization, Disabling)
  Sender: FDA-Public Use
  Company Number: US-MERCK-0503USA02049

PATIENT
  Age: 68 Year
  Sex: Female
  Weight: 72 kg

DRUGS (1)
  1. VIOXX [Suspect]
     Indication: ARTHRITIS
     Route: 048
     Dates: start: 20010101, end: 20020301

REACTIONS (5)
  - ANTIPHOSPHOLIPID ANTIBODIES [None]
  - ARTHROPATHY [None]
  - MYOCARDIAL INFARCTION [None]
  - PANIC DISORDER [None]
  - RETINAL VASCULAR DISORDER [None]
